FAERS Safety Report 8121833-4 (Version None)
Quarter: 2012Q1

REPORT INFORMATION
  Report Type: 
  Country: None (occurrence: None)
  Receive Date: 20120208
  Receipt Date: 20120202
  Transmission Date: 20120608
  Serious: Yes (Other)
  Sender: FDA-Public Use
  Company Number: US-PFIZER INC-2012030513

PATIENT

DRUGS (1)
  1. GEMCITABINE HYDROCHLORIDE [Suspect]
     Dosage: UNK
     Route: 064

REACTIONS (4)
  - RESPIRATORY DISTRESS [None]
  - ANAEMIA NEONATAL [None]
  - MATERNAL EXPOSURE TIMING UNSPECIFIED [None]
  - MATERNAL DRUGS AFFECTING FOETUS [None]
